FAERS Safety Report 6187478-0 (Version None)
Quarter: 2009Q2

REPORT INFORMATION
  Report Type: 
  Country: None (occurrence: None)
  Receive Date: 20090512
  Receipt Date: 20090427
  Transmission Date: 20091009
  Serious: Yes (Other)
  Sender: FDA-Public Use
  Company Number: US-ROCHE-630099

PATIENT

DRUGS (1)
  1. DACLIZUMAB [Suspect]
     Indication: MULTIPLE SCLEROSIS
     Route: 042

REACTIONS (1)
  - PALINDROMIC RHEUMATISM [None]
